FAERS Safety Report 8173366-7 (Version None)
Quarter: 2012Q1

REPORT INFORMATION
  Report Type: 
  Country: None (occurrence: None)
  Receive Date: 20120229
  Receipt Date: 20120215
  Transmission Date: 20120608
  Serious: Yes (Disabling)
  Sender: FDA-Public Use
  Company Number: JP-ASTELLAS-2012US001885

PATIENT
  Sex: Male

DRUGS (4)
  1. LIVACT [Concomitant]
     Indication: PRODUCT USED FOR UNKNOWN INDICATION
     Dosage: UNK
     Route: 065
     Dates: end: 20120206
  2. AMBISOME [Suspect]
     Indication: PNEUMONIA CRYPTOCOCCAL
     Dosage: 150 MG, UID/QD
     Route: 042
     Dates: start: 20120203, end: 20120206
  3. ITRACONAZOLE [Concomitant]
     Indication: PRODUCT USED FOR UNKNOWN INDICATION
     Dosage: UNK
     Route: 065
  4. LASIX [Concomitant]
     Indication: PRODUCT USED FOR UNKNOWN INDICATION
     Dosage: UNK
     Route: 065
     Dates: end: 20120206

REACTIONS (1)
  - RENAL FAILURE [None]
